FAERS Safety Report 8969482 (Version 1)
Quarter: 2012Q4

REPORT INFORMATION
  Report Type: 
  Country: UA (occurrence: UA)
  Receive Date: 20121217
  Receipt Date: 20121217
  Transmission Date: 20130627
  Serious: Yes (Other)
  Sender: FDA-Public Use
  Company Number: PHHY2012UA115837

PATIENT
  Age: 49 Year
  Sex: Male

DRUGS (1)
  1. RETARPEN [Suspect]
     Indication: ERYSIPELAS
     Dosage: 2400000 IU, UNK
     Route: 048
     Dates: start: 20070405

REACTIONS (5)
  - Asphyxia [Recovered/Resolved]
  - Cyanosis [Recovered/Resolved]
  - Hypotension [Recovered/Resolved]
  - Sleep disorder [Recovered/Resolved]
  - Tachycardia [Recovered/Resolved]
